FAERS Safety Report 4881931-5 (Version None)
Quarter: 2006Q1

REPORT INFORMATION
  Report Type: 
  Country: None (occurrence: None)
  Receive Date: 20060112
  Receipt Date: 20051228
  Transmission Date: 20060701
  Serious: Yes (Life-Threatening, Hospitalization)
  Sender: FDA-Public Use
  Company Number: 2005S1012191

PATIENT
  Age: 72 Year
  Sex: Male
  Weight: 101.1975 kg

DRUGS (8)
  1. CARVEDILOL [Suspect]
     Indication: CARDIAC DISORDER
     Dosage: UNKNOWN; PO; 10 MEQ; UNKNOWN; PO
     Route: 048
     Dates: start: 20050805, end: 20050901
  2. FUROSEMIDE [Suspect]
     Dosage: 20 MG; UNKNOWN; PO
     Route: 048
  3. WARFARIN SODIUM [Suspect]
     Dosage: PO
  4. AMIODARONE (200 MG) [Suspect]
     Dosage: 200 MG;BID;PO
     Route: 048
  5. AMLODIPINE [Suspect]
     Dosage: 5 MG; PO
     Route: 048
  6. ATORVASTATIN CALCIUM (20 MG) [Suspect]
     Dosage: 20 MG; PO
     Route: 048
  7. LISINOPRIL [Suspect]
     Dosage: 20 MG; UNKNOWN
  8. POTASSIUM SALT (10 MG) [Suspect]
     Dosage: ORAL
     Route: 048

REACTIONS (17)
  - ASTHENIA [None]
  - BLOOD PRESSURE SYSTOLIC DECREASED [None]
  - CARDIAC DISORDER [None]
  - CEREBROVASCULAR INSUFFICIENCY [None]
  - DEPRESSED LEVEL OF CONSCIOUSNESS [None]
  - DIZZINESS [None]
  - DYSPNOEA [None]
  - EXERCISE TOLERANCE DECREASED [None]
  - EYE ROLLING [None]
  - FOAMING AT MOUTH [None]
  - HEADACHE [None]
  - HEART RATE DECREASED [None]
  - LOSS OF CONSCIOUSNESS [None]
  - NAUSEA [None]
  - PALLOR [None]
  - SYNCOPE [None]
  - VERTIGO [None]
